FAERS Safety Report 13488213 (Version 1)
Quarter: 2017Q2

REPORT INFORMATION
  Report Type: Spontaneous
  Country: US (occurrence: US)
  Receive Date: 20170426
  Receipt Date: 20170426
  Transmission Date: 20170830
  Serious: No
  Sender: FDA-Public Use
  Company Number: US-ALKERMES INC.-ALK-2016-003766

PATIENT
  Sex: Male

DRUGS (2)
  1. VIVITROL [Suspect]
     Active Substance: NALTREXONE
     Indication: PRODUCT USED FOR UNKNOWN INDICATION
     Dosage: 380 MG, QMO
     Route: 030
     Dates: start: 2015
  2. DILAUDID [Concomitant]
     Active Substance: HYDROMORPHONE HYDROCHLORIDE
     Indication: SPINAL OPERATION
     Dosage: 8 MG, UNK

REACTIONS (7)
  - Spinal operation [Unknown]
  - Alcoholism [Unknown]
  - Drug ineffective [Unknown]
  - Feeling drunk [Unknown]
  - Anxiety [Unknown]
  - Euphoric mood [Unknown]
  - Drug use disorder [Unknown]
